FAERS Safety Report 13472495 (Version 2)
Quarter: 2017Q2

REPORT INFORMATION
  Report Type: Report from Study
  Country: BE (occurrence: BE)
  Receive Date: 20170424
  Receipt Date: 20170426
  Transmission Date: 20170830
  Serious: Yes (Hospitalization)
  Sender: FDA-Public Use
  Company Number: BE-PFIZER INC-2017165949

PATIENT
  Age: 70 Year
  Sex: Male
  Weight: 55 kg

DRUGS (2)
  1. PACLITAXEL. [Suspect]
     Active Substance: PACLITAXEL
     Indication: OESOPHAGEAL ADENOCARCINOMA
     Dosage: 126.19 MG, CYCLIC (ONCE EVER 2 WEEKS)
     Route: 042
     Dates: start: 20161102
  2. PACLITAXEL. [Suspect]
     Active Substance: PACLITAXEL
     Dosage: 95.7 MG, UNK
     Route: 042
     Dates: start: 20170321, end: 20170321

REACTIONS (1)
  - Liver function test increased [Not Recovered/Not Resolved]

NARRATIVE: CASE EVENT DATE: 20170404
